FAERS Safety Report 5494783-X (Version None)
Quarter: 2007Q4

REPORT INFORMATION
  Report Type: 
  Country: None (occurrence: None)
  Receive Date: 20071015
  Receipt Date: 20070808
  Transmission Date: 20080405
  Serious: No
  Sender: FDA-Public Use
  Company Number: 2007SP002782

PATIENT
  Age: 72 Year
  Sex: Female

DRUGS (3)
  1. LUNESTA [Suspect]
     Dosage: 1 MG; ORAL : 2 MG; ORAL : 3 MG; ORAL
     Route: 048
     Dates: start: 20070101, end: 20070101
  2. LUNESTA [Suspect]
     Dosage: 1 MG; ORAL : 2 MG; ORAL : 3 MG; ORAL
     Route: 048
     Dates: start: 20070101, end: 20070101
  3. LUNESTA [Suspect]
     Dosage: 1 MG; ORAL : 2 MG; ORAL : 3 MG; ORAL
     Route: 048
     Dates: start: 20070101

REACTIONS (2)
  - DEHYDRATION [None]
  - DIZZINESS [None]
